FAERS Safety Report 24437678 (Version 1)
Quarter: 2024Q4

REPORT INFORMATION
  Report Type: Spontaneous
  Country: ES (occurrence: ES)
  Receive Date: 20241015
  Receipt Date: 20241015
  Transmission Date: 20250115
  Serious: No
  Sender: ASTELLAS
  Company Number: ES-ASTELLAS-2024-AER-010224

PATIENT
  Sex: Male

DRUGS (1)
  1. VESICARE [Suspect]
     Active Substance: SOLIFENACIN SUCCINATE
     Indication: Product used for unknown indication
     Dosage: TWO DOSES OF 5MG ONCE A DAY
     Route: 065

REACTIONS (2)
  - Dry mouth [Unknown]
  - Overdose [Unknown]

NARRATIVE: CASE EVENT DATE: 20240901
